FAERS Safety Report 18092573 (Version 2)
Quarter: 2020Q3

REPORT INFORMATION
  Report Type: Spontaneous
  Country: US (occurrence: US)
  Receive Date: 20200730
  Receipt Date: 20200731
  Transmission Date: 20201103
  Serious: No
  Sender: FDA-Public Use
  Company Number: US-PFIZER INC-2020289031

PATIENT
  Age: 52 Year
  Sex: Female
  Weight: 48.99 kg

DRUGS (1)
  1. ZOMETA [Suspect]
     Active Substance: ZOLEDRONIC ACID
     Dosage: UNK (UNKNOWN DOSE, IV INFUSION ONCE/ EITHER 4% OR 5%)
     Route: 042
     Dates: start: 2020

REACTIONS (1)
  - Alopecia [Recovering/Resolving]

NARRATIVE: CASE EVENT DATE: 202003
